FAERS Safety Report 16721741 (Version 1)
Quarter: 2019Q3

REPORT INFORMATION
  Report Type: Spontaneous
  Country: TW (occurrence: TW)
  Receive Date: 20190820
  Receipt Date: 20190820
  Transmission Date: 20191005
  Serious: Yes (Other)
  Sender: FDA-Public Use
  Company Number: PHHY2019TW189012

PATIENT
  Age: 50 Year
  Sex: Male
  Weight: 72 kg

DRUGS (4)
  1. BISOPROLOL [Concomitant]
     Active Substance: BISOPROLOL
     Indication: HYPERTENSION
     Dosage: UNK
     Route: 065
  2. ISONIAZID. [Suspect]
     Active Substance: ISONIAZID
     Indication: LATENT TUBERCULOSIS
     Dosage: 15 MG/KG, QW (ROUNDED UP TO NEAREST 150 MG; MAXIMUM 900 MG, FOR A TOTAL OF 12 DOSES)
     Route: 065
  3. RIFAPENTINE [Suspect]
     Active Substance: RIFAPENTINE
     Indication: LATENT TUBERCULOSIS
     Dosage: 900 MG, QW
     Route: 065
  4. OLMESARTAN [Concomitant]
     Active Substance: OLMESARTAN
     Indication: HYPERTENSION
     Dosage: UNK
     Route: 065

REACTIONS (7)
  - Vomiting [Recovered/Resolved]
  - Hypotension [Recovered/Resolved]
  - Pyrexia [Recovered/Resolved]
  - Dizziness [Recovered/Resolved]
  - Shock [Recovered/Resolved]
  - Nausea [Recovered/Resolved]
  - Hyperhidrosis [Recovered/Resolved]
